FAERS Safety Report 16229449 (Version 1)
Quarter: 2019Q2

REPORT INFORMATION
  Report Type: Spontaneous
  Country: US (occurrence: US)
  Receive Date: 20190319
  Receipt Date: 20190319
  Transmission Date: 20190711
  Serious: No
  Sender: FDA-Public Use
  Company Number: None

PATIENT
  Age: 46 Year
  Sex: Male

DRUGS (2)
  1. TALTZ [Suspect]
     Active Substance: IXEKIZUMAB
     Indication: PSORIATIC ARTHROPATHY
     Dosage: INJECT 160MG (2 PENS) SUBCUTANEOUSLY AT WEEK 0 THEN 80MG (1 PEN) EVERY 4 WEEKS THEREAFTER
     Route: 058
     Dates: start: 201809
  2. TALTZ [Suspect]
     Active Substance: IXEKIZUMAB
     Indication: PSORIASIS
     Dosage: INJECT 160MG (2 PENS) SUBCUTANEOUSLY AT WEEK 0 THEN 80MG (1 PEN) EVERY 4 WEEKS THEREAFTER
     Route: 058
     Dates: start: 201809

REACTIONS (1)
  - Drug hypersensitivity [None]
